FAERS Safety Report 11783710 (Version 1)
Quarter: 2015Q4

REPORT INFORMATION
  Report Type: Spontaneous
  Country: AT (occurrence: AT)
  Receive Date: 20151127
  Receipt Date: 20151127
  Transmission Date: 20160305
  Serious: Yes (Hospitalization)
  Sender: FDA-Public Use
  Company Number: AT-ROCHE-1663908

PATIENT
  Sex: Female
  Weight: 72 kg

DRUGS (8)
  1. PERJETA [Suspect]
     Active Substance: PERTUZUMAB
     Indication: METASTASES TO BONE
  2. PERJETA [Suspect]
     Active Substance: PERTUZUMAB
     Indication: BREAST CANCER METASTATIC
     Dosage: 840/420 MG
     Route: 065
     Dates: start: 20141127
  3. PERJETA [Suspect]
     Active Substance: PERTUZUMAB
     Indication: METASTASES TO LIVER
     Route: 065
  4. HERCEPTIN [Suspect]
     Active Substance: TRASTUZUMAB
     Indication: METASTASES TO LIVER
     Route: 065
  5. HERCEPTIN [Suspect]
     Active Substance: TRASTUZUMAB
     Indication: BREAST CANCER METASTATIC
     Route: 065
     Dates: start: 20141127
  6. TAXOTERE [Suspect]
     Active Substance: DOCETAXEL
     Indication: PRODUCT USED FOR UNKNOWN INDICATION
     Route: 065
  7. XGEVA [Concomitant]
     Active Substance: DENOSUMAB
     Route: 058
  8. HERCEPTIN [Suspect]
     Active Substance: TRASTUZUMAB
     Indication: METASTASES TO BONE

REACTIONS (2)
  - Generalised oedema [Recovering/Resolving]
  - Pleural effusion [Recovering/Resolving]
